FAERS Safety Report 8315565-7 (Version None)
Quarter: 2012Q2

REPORT INFORMATION
  Report Type: 
  Country: None (occurrence: None)
  Receive Date: 20120426
  Receipt Date: 20120411
  Transmission Date: 20120825
  Serious: Yes (Other)
  Sender: FDA-Public Use
  Company Number: US-WATSON-2012-06442

PATIENT
  Sex: Female

DRUGS (3)
  1. ALENDRONATE SODIUM [Suspect]
     Indication: OSTEOPOROSIS
     Dosage: AS PRESCRIBED AND IN A FORESEEABLE MANNER
     Route: 048
     Dates: start: 20100401, end: 20100601
  2. ALENDRONATE SODIUM [Suspect]
     Indication: OSTEOPOROSIS
     Dosage: AS PRESCRIBED AND IN A FORESEEABLE MANNER
     Route: 048
     Dates: start: 20080301, end: 20100401
  3. FOSAMAX [Suspect]
     Indication: OSTEOPOROSIS
     Dosage: AS PRESCRIBED AND IN A FORESEEABLE MANNER
     Route: 048
     Dates: start: 19950101, end: 20080301

REACTIONS (3)
  - FEMUR FRACTURE [None]
  - INCORRECT DRUG ADMINISTRATION DURATION [None]
  - STRESS FRACTURE [None]
